FAERS Safety Report 23065513 (Version 1)
Quarter: 2023Q4

REPORT INFORMATION
  Report Type: Spontaneous
  Country: US (occurrence: US)
  Receive Date: 20231013
  Receipt Date: 20231013
  Transmission Date: 20240110
  Serious: Yes (Death)
  Sender: FDA-Public Use
  Company Number: US-PRINSTON PHARMACEUTICAL INC.-2023PRN00522

PATIENT
  Age: 54 Year
  Sex: Female

DRUGS (3)
  1. QUETIAPINE [Suspect]
     Active Substance: QUETIAPINE
  2. HALOPERIDOL [Suspect]
     Active Substance: HALOPERIDOL
  3. COCAINE [Suspect]
     Active Substance: COCAINE

REACTIONS (4)
  - Haemophagocytic lymphohistiocytosis [Fatal]
  - Neuroleptic malignant syndrome [Fatal]
  - Drug interaction [Fatal]
  - Multiple organ dysfunction syndrome [Fatal]
